FAERS Safety Report 24540317 (Version 1)
Quarter: 2024Q4

REPORT INFORMATION
  Report Type: Spontaneous
  Country: US (occurrence: US)
  Receive Date: 20241023
  Receipt Date: 20241023
  Transmission Date: 20250115
  Serious: Yes (Hospitalization, Other)
  Sender: YUNG SHIN PHARMACEUTICAL INDUSTRIAL
  Company Number: US-Yung Shin Pharmaceutical Ind.  Co., Ltd.-2163643

PATIENT
  Age: 59 Year
  Sex: Female

DRUGS (16)
  1. CLONIDINE HYDROCHLORIDE [Suspect]
     Active Substance: CLONIDINE HYDROCHLORIDE
     Indication: Product used for unknown indication
  2. CARVEDILOL [Suspect]
     Active Substance: CARVEDILOL
  3. PHENYLEPHRINE [Concomitant]
     Active Substance: PHENYLEPHRINE HYDROCHLORIDE
  4. VASOPRESSIN [Concomitant]
     Active Substance: VASOPRESSIN
  5. EPINEPHRINE [Concomitant]
     Active Substance: EPINEPHRINE
  6. NOREPINEPHRINE [Concomitant]
     Active Substance: NOREPINEPHRINE\NOREPINEPHRINE BITARTRATE
  7. METHYLENE BLUE [Concomitant]
     Active Substance: METHYLENE BLUE
  8. ACETYLCYSTEINE [Concomitant]
     Active Substance: ACETYLCYSTEINE
  9. MAGNESIUM SULFATE [Concomitant]
     Active Substance: MAGNESIUM SULFATE
  10. CALCIUM GLUCONATE [Concomitant]
     Active Substance: CALCIUM GLUCONATE
  11. GLUCAGON [Concomitant]
     Active Substance: GLUCAGON
  12. insulin with D10 infusion [Concomitant]
  13. ALPRAZOLAM [Suspect]
     Active Substance: ALPRAZOLAM
  14. TRAMADOL [Suspect]
     Active Substance: TRAMADOL
  15. CARISOPRODOL [Suspect]
     Active Substance: CARISOPRODOL
  16. AMLODIPINE [Suspect]
     Active Substance: AMLODIPINE BESYLATE

REACTIONS (3)
  - Distributive shock [Recovered/Resolved]
  - Intentional overdose [Unknown]
  - Cardiogenic shock [Recovered/Resolved]
